FAERS Safety Report 5508106-0 (Version None)
Quarter: 2007Q4

REPORT INFORMATION
  Report Type: 
  Country: None (occurrence: None)
  Receive Date: 20071106
  Receipt Date: 20071025
  Transmission Date: 20080405
  Serious: Yes (Hospitalization)
  Sender: FDA-Public Use
  Company Number: US-PFIZER INC-2007069818

PATIENT
  Sex: Male
  Weight: 77.6 kg

DRUGS (1)
  1. SU-011,248 [Suspect]
     Indication: METASTATIC RENAL CELL CARCINOMA
     Route: 048
     Dates: start: 20041122, end: 20070812

REACTIONS (4)
  - COUGH [None]
  - DYSPNOEA [None]
  - PNEUMONIA [None]
  - SYNCOPE [None]
